FAERS Safety Report 8973394 (Version 2)
Quarter: 2013Q3

REPORT INFORMATION
  Report Type: Report from Study
  Country: US (occurrence: US)
  Receive Date: 20121218
  Receipt Date: 20130829
  Transmission Date: 20140515
  Serious: Yes (Hospitalization, Other)
  Sender: FDA-Public Use
  Company Number: US-ACTELION-A-US2012-73649

PATIENT
  Age: 52 Year
  Sex: Female

DRUGS (3)
  1. VELETRI [Suspect]
     Indication: PULMONARY ARTERIAL HYPERTENSION
     Dosage: 15 NG/KG, PER MIN
     Route: 042
     Dates: start: 20120821
  2. ADCIRCA [Concomitant]
  3. LETAIRIS [Concomitant]

REACTIONS (17)
  - Exfoliative rash [Recovering/Resolving]
  - Pruritus generalised [Recovering/Resolving]
  - Diarrhoea [Recovering/Resolving]
  - Dyspnoea [Recovering/Resolving]
  - Pneumonia [Recovering/Resolving]
  - Decreased appetite [Recovering/Resolving]
  - Fatigue [Recovering/Resolving]
  - Asthenia [Recovering/Resolving]
  - Nausea [Recovering/Resolving]
  - Vomiting [Not Recovered/Not Resolved]
  - Overdose [Unknown]
  - Malaise [Not Recovered/Not Resolved]
  - Flushing [Recovering/Resolving]
  - Dizziness [Unknown]
  - Alopecia [Unknown]
  - Incorrect dose administered [Unknown]
  - Depression [Unknown]
